FAERS Safety Report 19145403 (Version 1)
Quarter: 2021Q2

REPORT INFORMATION
  Report Type: Report from Study
  Country: None (occurrence: ZA)
  Receive Date: 20210416
  Receipt Date: 20210416
  Transmission Date: 20210717
  Serious: Yes (Hospitalization)
  Sender: FDA-Public Use
  Company Number: ZA-ABBVIE-21K-143-3857686-00

PATIENT
  Sex: Female

DRUGS (1)
  1. HUMIRA [Suspect]
     Active Substance: ADALIMUMAB
     Indication: COLITIS ULCERATIVE
     Route: 058
     Dates: start: 20180509

REACTIONS (6)
  - Petechiae [Recovered/Resolved]
  - Dysstasia [Recovered/Resolved]
  - Peripheral swelling [Recovered/Resolved]
  - Inflammatory marker increased [Unknown]
  - Joint swelling [Recovered/Resolved]
  - Gait inability [Recovered/Resolved]
